FAERS Safety Report 19193706 (Version 1)
Quarter: 2021Q2

REPORT INFORMATION
  Report Type: Spontaneous
  Country: US (occurrence: US)
  Receive Date: 20210428
  Receipt Date: 20210428
  Transmission Date: 20210717
  Serious: Yes (Hospitalization)
  Sender: FDA-Public Use
  Company Number: None

PATIENT
  Age: 52 Year
  Sex: Female

DRUGS (12)
  1. HUMIRA [Suspect]
     Active Substance: ADALIMUMAB
     Indication: RHEUMATOID ARTHRITIS
     Dosage: ?          OTHER FREQUENCY:EVERY 2 WEEKS;?
     Route: 058
     Dates: start: 20210313
  2. DIAZEPAM. [Concomitant]
     Active Substance: DIAZEPAM
     Dates: start: 20210120
  3. NAPROXEN. [Concomitant]
     Active Substance: NAPROXEN
     Dates: start: 20210410
  4. AMITRIPTYLIN [Concomitant]
     Active Substance: AMITRIPTYLINE
     Dates: start: 20210410
  5. COVID?19 VACCINE NOS. [Suspect]
     Active Substance: COVID-19 VACCINE NOS
  6. CLONIDINE. [Concomitant]
     Active Substance: CLONIDINE
     Dates: start: 20201214
  7. HUMIRA [Concomitant]
     Active Substance: ADALIMUMAB
     Dates: start: 20210309
  8. QUETIAPINE. [Concomitant]
     Active Substance: QUETIAPINE
     Dates: start: 20210403
  9. AMITRIPTYLIN [Concomitant]
     Active Substance: AMITRIPTYLINE
     Dates: start: 20210416
  10. NAPROXEN. [Concomitant]
     Active Substance: NAPROXEN
     Dates: start: 20210211
  11. CLONAZEP [Concomitant]
     Dates: start: 20201214
  12. AMITRIPTYLIN [Concomitant]
     Active Substance: AMITRIPTYLINE
     Dates: start: 20200924

REACTIONS (2)
  - COVID-19 immunisation [None]
  - Vaccination complication [None]

NARRATIVE: CASE EVENT DATE: 20210427
